FAERS Safety Report 5904432-1 (Version None)
Quarter: 2008Q3

REPORT INFORMATION
  Report Type: 
  Country: None (occurrence: None)
  Receive Date: 20080930
  Receipt Date: 20080930
  Transmission Date: 20090109
  Serious: No
  Sender: FDA-Public Use
  Company Number: None

PATIENT
  Age: 35 Year
  Sex: Female
  Weight: 72.5755 kg

DRUGS (3)
  1. CETIRIZINE HYDROCHLORIDE WEGMEN'S [Suspect]
     Indication: ALLERGY TO ANIMAL
     Dosage: 1 PILL ONCE A DAY PO
     Dates: start: 20080320, end: 20080906
  2. CETIRIZINE HYDROCHLORIDE WEGMEN'S [Suspect]
     Indication: HOUSE DUST ALLERGY
     Dosage: 1 PILL ONCE A DAY PO
     Dates: start: 20080320, end: 20080906
  3. CETIRIZINE HYDROCHLORIDE WEGMEN'S [Suspect]
     Indication: SEASONAL ALLERGY
     Dosage: 1 PILL ONCE A DAY PO
     Dates: start: 20080320, end: 20080906

REACTIONS (7)
  - BURNING SENSATION [None]
  - ERYTHEMA [None]
  - OEDEMA PERIPHERAL [None]
  - PRURITUS [None]
  - SCRATCH [None]
  - URTICARIA [None]
  - VEIN DISORDER [None]
